FAERS Safety Report 17583689 (Version 1)
Quarter: 2020Q1

REPORT INFORMATION
  Report Type: Spontaneous
  Country: US (occurrence: US)
  Receive Date: 20200326
  Receipt Date: 20200326
  Transmission Date: 20200409
  Serious: Yes (Death, Other)
  Sender: FDA-Public Use
  Company Number: US-MELINTA THERAPEUTICS, INC-US-MLNT-20-00085

PATIENT

DRUGS (1)
  1. VABOMERE [Suspect]
     Active Substance: MEROPENEM\VABORBACTAM
     Indication: BACTERIAL INFECTION
     Dosage: NOT PROVIDED.
     Route: 041

REACTIONS (3)
  - Stevens-Johnson syndrome [Fatal]
  - Drug eruption [Fatal]
  - Toxic epidermal necrolysis [Fatal]
